FAERS Safety Report 18760198 (Version 1)
Quarter: 2021Q1

REPORT INFORMATION
  Report Type: Report from Study
  Country: None (occurrence: MX)
  Receive Date: 20210120
  Receipt Date: 20210120
  Transmission Date: 20210419
  Serious: Yes (Disabling)
  Sender: FDA-Public Use
  Company Number: MX-ABBVIE-21K-107-3735911-00

PATIENT
  Sex: Female
  Weight: 72 kg

DRUGS (1)
  1. HUMIRA [Suspect]
     Active Substance: ADALIMUMAB
     Indication: ANKYLOSING SPONDYLITIS
     Route: 058
     Dates: end: 2018

REACTIONS (10)
  - Arthralgia [Not Recovered/Not Resolved]
  - Gait inability [Unknown]
  - Paralysis [Unknown]
  - Somnolence [Not Recovered/Not Resolved]
  - Gastric ulcer [Unknown]
  - Muscle contracture [Not Recovered/Not Resolved]
  - Therapeutic response shortened [Unknown]
  - Pain [Unknown]
  - Pain in extremity [Not Recovered/Not Resolved]
  - Dizziness [Not Recovered/Not Resolved]

NARRATIVE: CASE EVENT DATE: 2018
